FAERS Safety Report 12058297 (Version 1)
Quarter: 2016Q1

REPORT INFORMATION
  Report Type: Spontaneous
  Country: FR (occurrence: FR)
  Receive Date: 20160210
  Receipt Date: 20160210
  Transmission Date: 20160526
  Serious: Yes (Life-Threatening)
  Sender: FDA-Public Use
  Company Number: FR-ACCORD-037736

PATIENT
  Age: 74 Year
  Sex: Female

DRUGS (4)
  1. FOLINIC ACID [Concomitant]
     Active Substance: LEUCOVORIN
  2. FLUOROURACIL. [Suspect]
     Active Substance: FLUOROURACIL
     Indication: PRODUCT USED FOR UNKNOWN INDICATION
     Dates: start: 20151208
  3. OXALIPLATIN ACCORD [Suspect]
     Active Substance: OXALIPLATIN
     Indication: PRODUCT USED FOR UNKNOWN INDICATION
     Dosage: STRENGTH: 200 MG, PERFUSION
     Route: 042
     Dates: start: 20151222, end: 20160105
  4. IRINOTECAN [Suspect]
     Active Substance: IRINOTECAN
     Indication: PRODUCT USED FOR UNKNOWN INDICATION
     Route: 042
     Dates: start: 20151208

REACTIONS (5)
  - Malaise [Recovered/Resolved]
  - Angioedema [Recovered/Resolved]
  - Dyspnoea [Recovered/Resolved]
  - Oxygen saturation decreased [Recovered/Resolved]
  - Erythema [Recovered/Resolved]

NARRATIVE: CASE EVENT DATE: 20160105
